FAERS Safety Report 4293742-2 (Version None)
Quarter: 2004Q1

REPORT INFORMATION
  Report Type: 
  Country: None (occurrence: None)
  Receive Date: 20040212
  Receipt Date: 20040116
  Transmission Date: 20041129
  Serious: Yes (Hospitalization, Other)
  Sender: FDA-Public Use
  Company Number: GB-GLAXOSMITHKLINE-B0320061A

PATIENT
  Age: 67 Year
  Sex: Male
  Weight: 64 kg

DRUGS (2)
  1. BECONASE [Suspect]
     Indication: SINUSITIS
     Dosage: 4PUFF SINGLE DOSE
     Route: 045
     Dates: start: 20031218, end: 20031218
  2. SALBUTAMOL SULPHATE [Concomitant]
     Route: 055

REACTIONS (4)
  - ANAPHYLACTIC REACTION [None]
  - BLOOD PRESSURE DECREASED [None]
  - LOSS OF CONSCIOUSNESS [None]
  - PARAESTHESIA [None]
